FAERS Safety Report 11341627 (Version 1)
Quarter: 2015Q3

REPORT INFORMATION
  Report Type: Spontaneous
  Country: US (occurrence: None)
  Receive Date: 20150629
  Receipt Date: 20150629
  Transmission Date: 20151125
  Serious: No
  Sender: FDA-Public Use
  Company Number: A-NJ2014-107666

PATIENT
  Age: 54 Year
  Sex: Male

DRUGS (3)
  1. OPSUMIT [Suspect]
     Active Substance: MACITENTAN
     Indication: PULMONARY HYPERTENSION
     Route: 048
     Dates: start: 201402
  2. SILDENAFIL (SILDENAFIL CITRATE) [Concomitant]
     Active Substance: SILDENAFIL CITRATE
  3. TREPROSTINIL [Concomitant]
     Active Substance: TREPROSTINIL

REACTIONS (2)
  - Haemoglobin decreased [None]
  - Treatment noncompliance [None]

NARRATIVE: CASE EVENT DATE: 20140714
